FAERS Safety Report 10298343 (Version 1)
Quarter: 2014Q3

REPORT INFORMATION
  Report Type: Spontaneous
  Country: US (occurrence: US)
  Receive Date: 20140711
  Receipt Date: 20140711
  Transmission Date: 20150326
  Serious: No
  Sender: FDA-Public Use
  Company Number: US-GLAXOSMITHKLINE-A1070980A

PATIENT
  Age: 72 Year
  Sex: Female

DRUGS (11)
  1. FLOVENT [Suspect]
     Active Substance: FLUTICASONE PROPIONATE
     Indication: ASTHMA
     Dosage: 2SPR TWICE PER DAY
     Route: 055
  2. CLONIDINE. [Concomitant]
     Active Substance: CLONIDINE
  3. LOPRESSOR [Concomitant]
     Active Substance: METOPROLOL TARTRATE
  4. NEXIUM [Concomitant]
     Active Substance: ESOMEPRAZOLE MAGNESIUM
  5. VENTOLIN [Suspect]
     Active Substance: ALBUTEROL SULFATE
     Indication: ASTHMA
     Dosage: 1SPR FOUR TIMES PER DAY
     Route: 055
  6. SINGULAIR [Concomitant]
     Active Substance: MONTELUKAST SODIUM
  7. BABY ASPIRIN [Concomitant]
     Active Substance: ASPIRIN
  8. FLOVENT [Concomitant]
     Active Substance: FLUTICASONE PROPIONATE
     Route: 055
  9. PLAVIX [Concomitant]
     Active Substance: CLOPIDOGREL BISULFATE
  10. ZYRTEC [Concomitant]
     Active Substance: CETIRIZINE HYDROCHLORIDE
  11. VITAMIN D [Concomitant]
     Active Substance: CHOLECALCIFEROL

REACTIONS (4)
  - Wheezing [Not Recovered/Not Resolved]
  - Hypersensitivity [Unknown]
  - Chest discomfort [Unknown]
  - Dyspnoea [Unknown]

NARRATIVE: CASE EVENT DATE: 201402
